FAERS Safety Report 7142370-X (Version None)
Quarter: 2010Q4

REPORT INFORMATION
  Report Type: 
  Country: None (occurrence: None)
  Receive Date: 20101207
  Receipt Date: 20101129
  Transmission Date: 20110411
  Serious: Yes (Hospitalization)
  Sender: FDA-Public Use
  Company Number: US-ALLERGAN-1015452US

PATIENT
  Sex: Female

DRUGS (4)
  1. BOTOXA? [Suspect]
     Indication: TORTICOLLIS
     Dosage: UNK
     Dates: start: 20080429, end: 20080429
  2. BOTOXA? [Suspect]
     Indication: MUSCLE SPASTICITY
  3. BOTOXA? [Suspect]
     Indication: PAIN IN EXTREMITY
  4. BOTOXA? [Suspect]
     Indication: MUSCLE TIGHTNESS

REACTIONS (10)
  - DYSPNOEA [None]
  - FATIGUE [None]
  - FEEDING DISORDER [None]
  - GAIT DISTURBANCE [None]
  - INJECTION SITE HYPERSENSITIVITY [None]
  - INJECTION SITE PAIN [None]
  - INJECTION SITE REACTION [None]
  - MUSCULAR WEAKNESS [None]
  - RASH GENERALISED [None]
  - WEIGHT DECREASED [None]
